FAERS Safety Report 9280572 (Version 2)
Quarter: 2013Q3

REPORT INFORMATION
  Report Type: Spontaneous
  Country: IT (occurrence: IT)
  Receive Date: 20130509
  Receipt Date: 20130807
  Transmission Date: 20140515
  Serious: Yes (Hospitalization)
  Sender: FDA-Public Use
  Company Number: IT-TEVA-402587ISR

PATIENT
  Age: 82 Year
  Sex: Female

DRUGS (3)
  1. LITIO CARBONATO [Suspect]
     Indication: BIPOLAR I DISORDER
     Dosage: 450 MILLIGRAM DAILY;
     Route: 048
     Dates: start: 20120106, end: 20130106
  2. DEPAKIN [Concomitant]
  3. EUTIROX [Concomitant]

REACTIONS (4)
  - Somnolence [Recovering/Resolving]
  - Toxicity to various agents [Recovering/Resolving]
  - Urinary retention [Recovering/Resolving]
  - Overdose [Recovering/Resolving]
